FAERS Safety Report 4582530-5 (Version None)
Quarter: 2005Q1

REPORT INFORMATION
  Report Type: 
  Country: None (occurrence: None)
  Receive Date: 20050211
  Receipt Date: 20050211
  Transmission Date: 20050727
  Serious: No
  Sender: FDA-Public Use
  Company Number: None

PATIENT
  Age: 70 Year
  Sex: Male
  Weight: 83.9154 kg

DRUGS (6)
  1. ATENOLOL [Suspect]
     Indication: HYPERTENSION
     Dosage: 50 MG
  2. COZAAR [Suspect]
     Indication: HYPERTENSION
     Dosage: 50 MG
  3. INSPA [Concomitant]
  4. PREDNISONE [Concomitant]
  5. ENBREL [Concomitant]
  6. ALPHAGAN [Concomitant]

REACTIONS (2)
  - INFLAMMATION [None]
  - NAUSEA [None]
